FAERS Safety Report 7509151-6 (Version None)
Quarter: 2011Q2

REPORT INFORMATION
  Report Type: 
  Country: None (occurrence: None)
  Receive Date: 20110519
  Receipt Date: 20110509
  Transmission Date: 20111010
  Serious: Yes (Other)
  Sender: FDA-Public Use
  Company Number: LEO-2011-00420

PATIENT
  Age: 39 Year
  Sex: Female
  Weight: 90 kg

DRUGS (2)
  1. REMICADE [Concomitant]
  2. TACLONEX [Suspect]
     Indication: PSORIASIS
     Dosage: 1 IN 1 D, TOPICAL
     Route: 061
     Dates: start: 20081201, end: 20100101

REACTIONS (1)
  - SKIN STRIAE [None]
